FAERS Safety Report 10815917 (Version 1)
Quarter: 2015Q1

REPORT INFORMATION
  Report Type: Spontaneous
  Country: US (occurrence: US)
  Receive Date: 20150218
  Receipt Date: 20150218
  Transmission Date: 20150721
  Serious: No
  Sender: FDA-Public Use
  Company Number: US-ABBVIE-14K-163-1283773-00

PATIENT
  Age: 62 Year
  Sex: Male
  Weight: 90.8 kg

DRUGS (2)
  1. HUMIRA [Suspect]
     Active Substance: ADALIMUMAB
     Indication: CROHN^S DISEASE
     Dates: start: 2013
  2. HUMIRA [Suspect]
     Active Substance: ADALIMUMAB

REACTIONS (3)
  - Wrong technique in drug usage process [Unknown]
  - Drug dose omission [Unknown]
  - Diarrhoea [Unknown]

NARRATIVE: CASE EVENT DATE: 201408
